FAERS Safety Report 5815384-7 (Version None)
Quarter: 2008Q3

REPORT INFORMATION
  Report Type: 
  Country: None (occurrence: None)
  Receive Date: 20080718
  Receipt Date: 20080707
  Transmission Date: 20090109
  Serious: Yes (Other)
  Sender: FDA-Public Use
  Company Number: US-PFIZER INC-2008047390

PATIENT
  Sex: Female
  Weight: 68 kg

DRUGS (11)
  1. CHANTIX [Suspect]
     Indication: SMOKING CESSATION THERAPY
     Dates: start: 20070516, end: 20070522
  2. CHANTIX [Suspect]
     Indication: NICOTINE DEPENDENCE
  3. CHANTIX [Suspect]
     Indication: CHRONIC OBSTRUCTIVE PULMONARY DISEASE
  4. VERAPAMIL [Suspect]
  5. WARFARIN SODIUM [Concomitant]
  6. VICODIN [Concomitant]
  7. MORPHINE [Concomitant]
  8. LISINOPRIL AND HYDROCHLOROTHIAZIDE [Concomitant]
  9. LIPITOR [Concomitant]
  10. NORTRIPTYLINE HCL [Concomitant]
  11. NORCO [Concomitant]

REACTIONS (2)
  - HEART RATE DECREASED [None]
  - SPINAL COMPRESSION FRACTURE [None]
